FAERS Safety Report 18538905 (Version 5)
Quarter: 2021Q1

REPORT INFORMATION
  Report Type: Spontaneous
  Country: US (occurrence: US)
  Receive Date: 20201124
  Receipt Date: 20210105
  Transmission Date: 20210419
  Serious: Yes (Hospitalization, Other)
  Sender: FDA-Public Use
  Company Number: US-PFIZER INC-2020456682

PATIENT
  Age: 68 Year
  Sex: Male
  Weight: 66 kg

DRUGS (6)
  1. METHYLPREDNISOLONE SODIUM SUCCINATE. [Suspect]
     Active Substance: METHYLPREDNISOLONE SODIUM SUCCINATE
     Indication: HYPOXIA
  2. METHYLPREDNISOLONE SODIUM SUCCINATE. [Suspect]
     Active Substance: METHYLPREDNISOLONE SODIUM SUCCINATE
     Indication: COVID-19
     Dosage: 40 MG, 3X/DAY (HOSPITAL DAYS 4?6, 8?10, 12 AND 13)
     Route: 042
  3. TOCILIZUMAB. [Suspect]
     Active Substance: TOCILIZUMAB
     Indication: HYPOXIA
     Dosage: 8 MG/KG (TOTAL, ON HD 2 )
     Route: 042
  4. TOCILIZUMAB. [Suspect]
     Active Substance: TOCILIZUMAB
     Indication: COVID-19
  5. OXYGEN. [Concomitant]
     Active Substance: OXYGEN
     Indication: COVID-19
     Dosage: 2 L
  6. METHYLPREDNISOLONE SODIUM SUCCINATE. [Suspect]
     Active Substance: METHYLPREDNISOLONE SODIUM SUCCINATE
     Indication: PYREXIA

REACTIONS (10)
  - Bacteraemia [Recovered/Resolved]
  - Off label use [Unknown]
  - Disseminated strongyloidiasis [Recovered/Resolved]
  - Staphylococcal infection [Recovered/Resolved]
  - Streptococcal infection [Recovered/Resolved]
  - Meningitis bacterial [Recovered/Resolved]
  - Bacterial sepsis [Recovered/Resolved]
  - Pseudomonas infection [Recovered/Resolved]
  - Hypotension [Recovered/Resolved]
  - Citrobacter infection [Recovered/Resolved]
